FAERS Safety Report 5476979-6 (Version None)
Quarter: 2007Q4

REPORT INFORMATION
  Report Type: 
  Country: None (occurrence: None)
  Receive Date: 20071003
  Receipt Date: 20071003
  Transmission Date: 20080405
  Serious: Yes (Hospitalization)
  Sender: FDA-Public Use
  Company Number: None

PATIENT
  Sex: Female
  Weight: 41.8 kg

DRUGS (12)
  1. CYCLOPHOSPHAMIDE [Suspect]
     Dosage: 960 MG
  2. DOXIL [Suspect]
     Dosage: 51MG
  3. NEULASTA [Suspect]
     Dosage: 6 MG
  4. PREDNISONE [Suspect]
     Dosage: 250 MG
  5. RITUXIMAB [Suspect]
     Dosage: 480 MG
  6. VINCRISTINE SULFATE [Suspect]
     Dosage: 2 MG
  7. COZAAR [Concomitant]
  8. DARVON [Concomitant]
  9. LACTULOSE [Concomitant]
  10. LEVOTHROID [Concomitant]
  11. METOCLOPRAMIDE [Concomitant]
  12. ZEGERID [Concomitant]

REACTIONS (3)
  - MUSCULOSKELETAL PAIN [None]
  - PYREXIA [None]
  - SWELLING [None]
